FAERS Safety Report 8036119-6 (Version None)
Quarter: 2012Q1

REPORT INFORMATION
  Report Type: 
  Country: None (occurrence: None)
  Receive Date: 20120106
  Receipt Date: 20111228
  Transmission Date: 20120608
  Serious: Yes (Other)
  Sender: FDA-Public Use
  Company Number: 2011SP054335

PATIENT
  Age: 49 Year
  Sex: Male

DRUGS (12)
  1. ALPRAZOLAM [Concomitant]
  2. INTEGRILIN [Suspect]
     Indication: PRODUCT USED FOR UNKNOWN INDICATION
     Dosage: 5 ML;ONCE;IV
     Route: 042
     Dates: start: 20111021, end: 20111021
  3. SUFENTANYL (SUFENTANIL) [Suspect]
     Indication: PRODUCT USED FOR UNKNOWN INDICATION
     Dosage: 1 DF;ONCE;IV
     Route: 042
     Dates: start: 20111021, end: 20111021
  4. LYSINE ASPIRIN [Concomitant]
  5. HEXABRIX [Suspect]
     Indication: PRODUCT USED FOR UNKNOWN INDICATION
     Dosage: 320 MG;ONCE;IV
     Route: 042
     Dates: start: 20111021, end: 20111021
  6. MIDAZOLAM [Suspect]
     Indication: PRODUCT USED FOR UNKNOWN INDICATION
     Dosage: 1 IU;ONCE;IV
     Route: 042
     Dates: start: 20111021, end: 20111021
  7. CLOPIDOGREL BISULFATE [Concomitant]
  8. TENECTEPLASE [Concomitant]
  9. SODIUM CHLORIDE [Concomitant]
  10. BISOPROLOL FUMARATE [Concomitant]
  11. ISOSORBIDE DINITRATE [Suspect]
     Indication: PRODUCT USED FOR UNKNOWN INDICATION
     Dosage: 2 MG;ONCE;INCOR
     Route: 021
     Dates: start: 20111021, end: 20111021
  12. ENOXAPARIN [Concomitant]

REACTIONS (1)
  - ANAPHYLACTIC SHOCK [None]
